FAERS Safety Report 11107440 (Version 1)
Quarter: 2015Q2

REPORT INFORMATION
  Report Type: Spontaneous
  Country: US (occurrence: US)
  Receive Date: 20150512
  Receipt Date: 20150512
  Transmission Date: 20150821
  Serious: Yes (Other)
  Sender: FDA-Public Use
  Company Number: US-ELI_LILLY_AND_COMPANY-US201505001856

PATIENT
  Sex: Female

DRUGS (7)
  1. PROZAC [Suspect]
     Active Substance: FLUOXETINE HYDROCHLORIDE
     Dosage: 40 MG, QD
     Route: 065
     Dates: start: 19990712
  2. FOLATE [Concomitant]
     Active Substance: FOLATE SODIUM
     Dosage: 500 UG, UNK
     Route: 065
  3. BUSPAR [Concomitant]
     Active Substance: BUSPIRONE HYDROCHLORIDE
  4. TENORMIN [Concomitant]
     Active Substance: ATENOLOL
  5. AMBIEN [Concomitant]
     Active Substance: ZOLPIDEM TARTRATE
  6. FOLATE [Concomitant]
     Active Substance: FOLATE SODIUM
     Dosage: 4 MG, QD
     Route: 065
  7. PROZAC [Suspect]
     Active Substance: FLUOXETINE HYDROCHLORIDE
     Indication: DEPRESSION
     Dosage: 20 MG, QD
     Route: 065
     Dates: start: 19990628, end: 19990712

REACTIONS (2)
  - Maternal exposure during pregnancy [Unknown]
  - Premature separation of placenta [Unknown]
